FAERS Safety Report 4861969-4 (Version None)
Quarter: 2005Q4

REPORT INFORMATION
  Report Type: 
  Country: None (occurrence: None)
  Receive Date: 20051130
  Receipt Date: 20050407
  Transmission Date: 20060501
  Serious: Yes (Other)
  Sender: FDA-Public Use
  Company Number: PHEH2005US03281

PATIENT
  Age: 57 Year
  Sex: Female

DRUGS (3)
  1. LAMISIL [Suspect]
     Indication: NAIL TINEA
     Dosage: 250 MG, QD, ORAL
     Route: 048
     Dates: start: 20050201, end: 20050311
  2. VITAMIN B12 [Concomitant]
  3. CALCIUM (CALCIUM) [Concomitant]

REACTIONS (5)
  - AGEUSIA [None]
  - DYSGEUSIA [None]
  - RASH ERYTHEMATOUS [None]
  - STOMACH DISCOMFORT [None]
  - WEIGHT DECREASED [None]
